FAERS Safety Report 15946492 (Version 2)
Quarter: 2020Q3

REPORT INFORMATION
  Report Type: Report from Study
  Country: IT (occurrence: IT)
  Receive Date: 20190211
  Receipt Date: 20200916
  Transmission Date: 20201102
  Serious: Yes (Hospitalization, Other)
  Sender: FDA-Public Use
  Company Number: IT-MYLANLABS-2019M1011509

PATIENT
  Age: 90 Year
  Sex: Male

DRUGS (7)
  1. QUETIAPINE. [Suspect]
     Active Substance: QUETIAPINE
     Indication: PRODUCT USED FOR UNKNOWN INDICATION
     Dosage: UNK
  2. REGOLINT [Concomitant]
     Active Substance: ETHYLENE GLYCOL
     Dosage: UNK
  3. MINIAS [Suspect]
     Active Substance: LORMETAZEPAM
     Indication: PRODUCT USED FOR UNKNOWN INDICATION
     Dosage: UNK
  4. TRITTICO [Suspect]
     Active Substance: TRAZODONE HYDROCHLORIDE
     Indication: PRODUCT USED FOR UNKNOWN INDICATION
     Dosage: UNK
  5. QUETIAPINE. [Suspect]
     Active Substance: QUETIAPINE
     Dosage: 200 MILLIGRAM, TOTAL
     Route: 048
     Dates: start: 20200812, end: 20200812
  6. DEPAKIN [Suspect]
     Active Substance: VALPROATE SODIUM
     Dosage: 200 MILLIGRAM, TOTAL
     Route: 048
     Dates: start: 20200812, end: 20200812
  7. HALDOL [Suspect]
     Active Substance: HALOPERIDOL
     Indication: PRODUCT USED FOR UNKNOWN INDICATION
     Dosage: UNK

REACTIONS (5)
  - Drug abuse [Unknown]
  - Sopor [Recovering/Resolving]
  - Medication error [Recovering/Resolving]
  - Intentional product misuse [Unknown]
  - Overdose [Recovered/Resolved]

NARRATIVE: CASE EVENT DATE: 20180717
